FAERS Safety Report 20889207 (Version 1)
Quarter: 2022Q2

REPORT INFORMATION
  Report Type: Spontaneous
  Country: GB (occurrence: GB)
  Receive Date: 20220530
  Receipt Date: 20220530
  Transmission Date: 20220721
  Serious: Yes (Hospitalization)
  Sender: FDA-Public Use
  Company Number: GB-AUROBINDO-AUR-APL-2022-019119

PATIENT
  Age: 38 Year
  Sex: Male

DRUGS (6)
  1. AMOXICILLIN\CLAVULANATE POTASSIUM [Suspect]
     Active Substance: AMOXICILLIN\CLAVULANATE POTASSIUM
     Indication: Emphysema
     Dosage: 1.2 GRAM, 3 TIMES A DAY (FOR FOUR DAYS)
     Route: 065
  2. MEROPENEM [Suspect]
     Active Substance: MEROPENEM
     Indication: Emphysema
     Dosage: 1 GRAM, 3 TIMES A DAY
     Route: 042
  3. METRONIDAZOLE [Suspect]
     Active Substance: METRONIDAZOLE
     Indication: Emphysema
     Dosage: 400 MILLIGRAM, 3 TIMES A DAY (FOR FIVE DAYS)
     Route: 042
  4. CEFTRIAXONE [Suspect]
     Active Substance: CEFTRIAXONE
     Indication: Emphysema
     Dosage: 2 GRAM, TWO TIMES A DAY
     Route: 042
  5. LEVOFLOXACIN [Suspect]
     Active Substance: LEVOFLOXACIN
     Indication: Emphysema
     Dosage: 500 MILLIGRAM, TWO TIMES A DAY (FOR FOUR DAYS)
     Route: 065
  6. PIPERACILLIN SODIUM\TAZOBACTAM SODIUM [Suspect]
     Active Substance: PIPERACILLIN SODIUM\TAZOBACTAM SODIUM
     Indication: Emphysema
     Dosage: 4.5 GRAM, 3 TIMES A DAY (FOR 12 DAYS)
     Route: 042

REACTIONS (1)
  - Treatment failure [Unknown]
